FAERS Safety Report 20638466 (Version 1)
Quarter: 2022Q1

REPORT INFORMATION
  Report Type: Spontaneous
  Country: FR (occurrence: FR)
  Receive Date: 20220325
  Receipt Date: 20220325
  Transmission Date: 20220423
  Serious: Yes (Hospitalization)
  Sender: FDA-Public Use
  Company Number: None

PATIENT
  Age: 47 Year
  Sex: Male
  Weight: 116 kg

DRUGS (3)
  1. BRAFTOVI [Suspect]
     Active Substance: ENCORAFENIB
     Indication: Malignant melanoma stage IV
     Dosage: 450 MG, PER DAY
     Route: 048
     Dates: start: 20180911, end: 20190812
  2. MEKTOVI [Suspect]
     Active Substance: BINIMETINIB
     Indication: Malignant melanoma stage IV
     Dosage: 90 MG, PER DAY
     Route: 048
     Dates: start: 20180911, end: 20190812
  3. AUGMENTIN [Concomitant]
     Active Substance: AMOXICILLIN\CLAVULANATE POTASSIUM
     Indication: Erysipelas
     Dosage: 3 G, PER DAY
     Route: 048
     Dates: start: 20190628, end: 20190704

REACTIONS (2)
  - Second primary malignancy [Recovering/Resolving]
  - B-cell lymphoma stage I [Recovering/Resolving]

NARRATIVE: CASE EVENT DATE: 20190601
